FAERS Safety Report 14615974 (Version 2)
Quarter: 2018Q2

REPORT INFORMATION
  Report Type: Spontaneous
  Country: US (occurrence: US)
  Receive Date: 20180309
  Receipt Date: 20180412
  Transmission Date: 20180711
  Serious: Yes (Other)
  Sender: FDA-Public Use
  Company Number: US-BRISTOL-MYERS SQUIBB COMPANY-BMS-2018-022368

PATIENT
  Age: 59 Year
  Sex: Female

DRUGS (1)
  1. SPRYCEL [Suspect]
     Active Substance: DASATINIB
     Indication: CHRONIC MYELOID LEUKAEMIA
     Dosage: 100 MG, QD
     Route: 048
     Dates: start: 20180222

REACTIONS (8)
  - Haemorrhage [Unknown]
  - Headache [Unknown]
  - Swelling face [Recovering/Resolving]
  - Increased tendency to bruise [Unknown]
  - Musculoskeletal pain [Unknown]
  - Fatigue [Unknown]
  - Myalgia [Unknown]
  - Eye swelling [Unknown]

NARRATIVE: CASE EVENT DATE: 20180223
